FAERS Safety Report 4861783-X (Version None)
Quarter: 2005Q4

REPORT INFORMATION
  Report Type: 
  Country: None (occurrence: None)
  Receive Date: 20051130
  Receipt Date: 20041109
  Transmission Date: 20060501
  Serious: Yes (Other)
  Sender: FDA-Public Use
  Company Number: 2004230335US

PATIENT
  Age: 74 Year
  Sex: Female
  Weight: 57.6 kg

DRUGS (14)
  1. LINEZOLID SOLUTION, STERILE (LINEZOLID) [Suspect]
     Indication: ENTEROCOCCAL INFECTION
     Dosage: 1200 MG (600 MG,BID),INTRAVENOUS
     Route: 042
     Dates: start: 20040729
  2. ERYTHROPOIETIN (ERYTHROPOIETIN) [Concomitant]
  3. MEGACE [Concomitant]
  4. DILTIAZEM HYDROCHLORIDE [Concomitant]
  5. QUINAPRIL HCL [Concomitant]
  6. CALCIUM ACETATE (CALCIUM ACETATE) [Concomitant]
  7. PENTOXIFYLLINE [Concomitant]
  8. CLONIDINE [Concomitant]
  9. PARACETAMOL (PARACETAMOL) [Concomitant]
  10. LEVOTHYROXINE SODIUM [Concomitant]
  11. METOPROLOL TARTRATE [Concomitant]
  12. DIPHENHYDRAMINE HCL [Concomitant]
  13. AMLODIPINE BESYLATE [Concomitant]
  14. CALCITRIOL [Concomitant]

REACTIONS (1)
  - NEUTROPENIA [None]
